FAERS Safety Report 25367191 (Version 2)
Quarter: 2025Q2

REPORT INFORMATION
  Report Type: Spontaneous
  Country: US (occurrence: US)
  Receive Date: 20250528
  Receipt Date: 20250620
  Transmission Date: 20250717
  Serious: No
  Sender: SUNOVION
  Company Number: US-SMPA-2025SPA005971AA

PATIENT

DRUGS (14)
  1. ORGOVYX [Suspect]
     Active Substance: RELUGOLIX
     Indication: Prostate cancer
     Dosage: 360 MG, SINGLE
     Route: 048
     Dates: start: 20250331, end: 20250331
  2. ORGOVYX [Suspect]
     Active Substance: RELUGOLIX
     Dosage: 120 MG, QD
     Route: 048
     Dates: start: 20250401
  3. FENOFIBRATE [Concomitant]
     Active Substance: FENOFIBRATE
     Route: 065
  4. MOUNJARO [Concomitant]
     Active Substance: TIRZEPATIDE
     Route: 065
  5. NITROGLYCERIN [Concomitant]
     Active Substance: NITROGLYCERIN
     Route: 060
  6. OLMESARTAN [Concomitant]
     Active Substance: OLMESARTAN
     Route: 065
  7. TUMS [Concomitant]
     Active Substance: CALCIUM CARBONATE
  8. ATORVASTATIN [Concomitant]
     Active Substance: ATORVASTATIN
     Route: 065
  9. CETIRIZINE [Concomitant]
     Active Substance: CETIRIZINE HYDROCHLORIDE
     Route: 065
  10. CHLORPHENIRAMINE MALEATE [Concomitant]
     Active Substance: CHLORPHENIRAMINE MALEATE
     Route: 065
  11. ESOMEPRAZOLE [Concomitant]
     Active Substance: ESOMEPRAZOLE
     Route: 065
  12. FAMOTIDINE [Concomitant]
     Active Substance: FAMOTIDINE
     Route: 065
  13. CARVEDILOL [Concomitant]
     Active Substance: CARVEDILOL
     Route: 065
  14. ZYRTEC [Concomitant]
     Active Substance: CETIRIZINE HYDROCHLORIDE
     Route: 065

REACTIONS (2)
  - Palpitations [Unknown]
  - Hot flush [Unknown]
